FAERS Safety Report 4811192-4 (Version None)
Quarter: 2005Q4

REPORT INFORMATION
  Report Type: 
  Country: None (occurrence: None)
  Receive Date: 20051027
  Receipt Date: 20051017
  Transmission Date: 20060501
  Serious: Yes (Other)
  Sender: FDA-Public Use
  Company Number: JP-JNJFOC-20041106871

PATIENT
  Sex: Female

DRUGS (12)
  1. RISPERDAL [Suspect]
     Route: 048
  2. RISPERDAL [Suspect]
     Route: 048
  3. RISPERDAL [Suspect]
     Indication: SCHIZOPHRENIA
     Route: 048
  4. OREN-GEDOKU-TO [Concomitant]
     Route: 048
  5. OREN-GEDOKU-TO [Concomitant]
     Route: 048
  6. OREN-GEDOKU-TO [Concomitant]
     Indication: GASTRITIS
     Route: 048
  7. ESTAZOLAM [Concomitant]
     Indication: INSOMNIA
     Route: 048
  8. FLURAZEPAM HCL [Concomitant]
     Indication: INSOMNIA
     Route: 048
  9. PROMETHAZINE HYDROCHLORIDE [Concomitant]
     Route: 048
  10. TRIHEXYPHENIDYL HYDROCHLORIDE [Concomitant]
     Route: 048
  11. ECABET SODIUM [Concomitant]
     Route: 048
  12. RILMAZAFONE HYDROCHLORIDE [Concomitant]
     Indication: INSOMNIA
     Route: 048

REACTIONS (5)
  - HAEMATOCRIT DECREASED [None]
  - HAEMOGLOBIN DECREASED [None]
  - HYPERGLYCAEMIA [None]
  - RED BLOOD CELL COUNT DECREASED [None]
  - WHITE BLOOD CELL COUNT DECREASED [None]
